FAERS Safety Report 8603638-0 (Version None)
Quarter: 2012Q3

REPORT INFORMATION
  Report Type: 
  Country: None (occurrence: None)
  Receive Date: 20120817
  Receipt Date: 20120809
  Transmission Date: 20120928
  Serious: Yes (Other)
  Sender: FDA-Public Use
  Company Number: BR-BAYER-2011-065874

PATIENT
  Age: 63 Year
  Sex: Male
  Weight: 67 kg

DRUGS (9)
  1. PREPARATIONS INCREASING URIC ACID EXCRETION [Concomitant]
     Dosage: 1 DF, QD
     Route: 048
     Dates: start: 20110612, end: 20110712
  2. OMEPRAZOLE [Concomitant]
     Indication: PROPHYLAXIS
     Dosage: 2 DF, QD
     Route: 048
     Dates: start: 20080101
  3. NEXAVAR [Suspect]
     Indication: HEPATIC NEOPLASM MALIGNANT
     Dosage: 2 DF, BID
     Route: 048
     Dates: start: 20101001, end: 20120803
  4. CAPTOPRIL [Concomitant]
     Indication: HYPERTENSION
     Dosage: 4 DF, QD
     Route: 048
     Dates: start: 19990101
  5. HYDROCHLOROTHIAZIDE [Concomitant]
     Indication: HYPERTENSION
  6. PREPARATIONS INCREASING URIC ACID EXCRETION [Concomitant]
     Dosage: 1 DF, QD
     Route: 048
     Dates: start: 20110612, end: 20110712
  7. PREPARATIONS INCREASING URIC ACID EXCRETION [Concomitant]
     Indication: BLOOD URIC ACID ABNORMAL
     Dosage: 1 DF, QD
     Route: 048
     Dates: start: 20110401, end: 20110601
  8. PREPARATIONS INCREASING URIC ACID EXCRETION [Concomitant]
     Dosage: 1 DF, QD
     Route: 048
     Dates: start: 20110612, end: 20110712
  9. HYDROCHLOROTHIAZIDE [Concomitant]
     Indication: DYSURIA
     Dosage: 4 DF, QD
     Route: 048
     Dates: start: 19990101

REACTIONS (10)
  - URINARY TRACT INFECTION [None]
  - BLOOD PRESSURE INCREASED [None]
  - ABDOMINAL PAIN [None]
  - METASTASES TO BONE [None]
  - BACK PAIN [None]
  - DIPLOPIA [None]
  - DECREASED APPETITE [None]
  - WEIGHT DECREASED [None]
  - DIARRHOEA [None]
  - EYE DISORDER [None]
